FAERS Safety Report 6940211-4 (Version None)
Quarter: 2010Q3

REPORT INFORMATION
  Report Type: 
  Country: None (occurrence: None)
  Receive Date: 20100825
  Receipt Date: 20100816
  Transmission Date: 20110219
  Serious: Yes (Other)
  Sender: FDA-Public Use
  Company Number: JP-JNJFOC-20100510751

PATIENT
  Age: 31 Year
  Sex: Male

DRUGS (5)
  1. ITRIZOLE [Suspect]
     Indication: FUNGAEMIA
     Route: 042
  2. ITRIZOLE [Suspect]
     Indication: PRODUCT USED FOR UNKNOWN INDICATION
     Route: 048
  3. PREDONINE [Concomitant]
     Indication: GRAFT VERSUS HOST DISEASE
     Route: 042
  4. OMEPRAL [Concomitant]
     Indication: GASTRITIS
     Route: 042
  5. ZOSYN [Concomitant]
     Indication: BRONCHITIS CHRONIC
     Route: 042

REACTIONS (7)
  - ALANINE AMINOTRANSFERASE INCREASED [None]
  - ASPARTATE AMINOTRANSFERASE INCREASED [None]
  - BLOOD ALKALINE PHOSPHATASE INCREASED [None]
  - BLOOD LACTATE DEHYDROGENASE INCREASED [None]
  - GAMMA-GLUTAMYLTRANSFERASE INCREASED [None]
  - HYPERNATRAEMIA [None]
  - HYPOKALAEMIA [None]
